FAERS Safety Report 17094533 (Version 2)
Quarter: 2019Q4

REPORT INFORMATION
  Report Type: Spontaneous
  Country: PL (occurrence: PL)
  Receive Date: 20191129
  Receipt Date: 20191211
  Transmission Date: 20200122
  Serious: Yes (Hospitalization, Other)
  Sender: FDA-Public Use
  Company Number: PL-ACCORD-162065

PATIENT
  Age: 45 Year
  Sex: Female

DRUGS (7)
  1. INSULIN ASPART [Concomitant]
     Active Substance: INSULIN ASPART
     Indication: TYPE 1 DIABETES MELLITUS
     Dosage: PERMANENT DOSE
  2. NIMESULIDE [Suspect]
     Active Substance: NIMESULIDE
     Indication: PAIN IN EXTREMITY
  3. LEVOTHYROXINE. [Concomitant]
     Active Substance: LEVOTHYROXINE
     Indication: HYPOTHYROIDISM
     Dosage: 150 UG, QD, 150 MG/DAY
  4. FUROSEMIDE. [Suspect]
     Active Substance: FUROSEMIDE
     Indication: SWELLING
     Dosage: UP TO 4 TABLETS / DAY QD
  5. PARACETAMOL [Suspect]
     Active Substance: ACETAMINOPHEN
     Indication: PAIN
  6. ISOPHANE INSULIN [Concomitant]
     Active Substance: INSULIN NOS
     Indication: TYPE 1 DIABETES MELLITUS
     Dosage: INJECTED BEFORE SLEEP
  7. KETOPROFEN. [Suspect]
     Active Substance: KETOPROFEN
     Indication: ARTHRALGIA
     Dosage: 50 MG, WHEN AS NEEDED, PROBABLY EVEN UPTO 6-8 TABLETS PER 24 HOURS

REACTIONS (5)
  - Contraindicated product administered [Unknown]
  - Gastritis erosive [Recovered/Resolved]
  - Intentional product misuse [Unknown]
  - Iron deficiency anaemia [Not Recovered/Not Resolved]
  - Drug abuse [Unknown]
